FAERS Safety Report 5050057-2 (Version None)
Quarter: 2006Q2

REPORT INFORMATION
  Report Type: 
  Country: None (occurrence: None)
  Receive Date: 20060601
  Receipt Date: 20060228
  Transmission Date: 20061013
  Serious: No
  Sender: FDA-Public Use
  Company Number: US200603000048

PATIENT
  Age: 84 Year
  Sex: Female

DRUGS (3)
  1. CYMBALTA [Suspect]
     Dosage: SEE IMAGE
  2. NEXIUM /UNK (ESOMEPRAZOLE) [Concomitant]
  3. ALPRAZOLAM [Concomitant]

REACTIONS (2)
  - CRYING [None]
  - MEMORY IMPAIRMENT [None]
